FAERS Safety Report 7593259-3 (Version None)
Quarter: 2011Q3

REPORT INFORMATION
  Report Type: 
  Country: None (occurrence: None)
  Receive Date: 20110706
  Receipt Date: 20110701
  Transmission Date: 20111222
  Serious: Yes (Life-Threatening)
  Sender: FDA-Public Use
  Company Number: IT-PFIZER INC-2008096370

PATIENT
  Age: 63 Year
  Sex: Male

DRUGS (2)
  1. METFORMIN HCL [Concomitant]
     Route: 048
     Dates: start: 20060101, end: 20081017
  2. SUTENT [Suspect]
     Indication: RENAL CELL CARCINOMA
     Route: 048
     Dates: start: 20080105, end: 20080908

REACTIONS (1)
  - DEEP VEIN THROMBOSIS [None]
